FAERS Safety Report 7055312-2 (Version None)
Quarter: 2010Q4

REPORT INFORMATION
  Report Type: 
  Country: None (occurrence: None)
  Receive Date: 20101021
  Receipt Date: 20101013
  Transmission Date: 20110411
  Serious: Yes (Other)
  Sender: FDA-Public Use
  Company Number: FR-ELI_LILLY_AND_COMPANY-FR201010003137

PATIENT
  Age: 72 Year
  Sex: Female

DRUGS (6)
  1. BYETTA [Suspect]
     Dosage: 5 UG, DAILY (1/D)
     Route: 058
  2. BYETTA [Suspect]
     Dosage: 10 UG, EACH EVENING
     Route: 058
  3. COAPROVEL [Concomitant]
  4. TENORMIN [Concomitant]
  5. MEDIATENSYL [Concomitant]
  6. METFORMIN HCL [Concomitant]

REACTIONS (3)
  - HYPOGLYCAEMIA [None]
  - INCORRECT DOSE ADMINISTERED [None]
  - SYNCOPE [None]
